FAERS Safety Report 6923141-3 (Version None)
Quarter: 2010Q3

REPORT INFORMATION
  Report Type: 
  Country: None (occurrence: None)
  Receive Date: 20100813
  Receipt Date: 20100809
  Transmission Date: 20110219
  Serious: Yes (Hospitalization)
  Sender: FDA-Public Use
  Company Number: BR-ROCHE-639025

PATIENT
  Sex: Female
  Weight: 51 kg

DRUGS (6)
  1. CAPECITABINE [Suspect]
     Dosage: REPORTED THAT PATIENT HAD FINISHED THE XELODA INTAKE (3RD CYCLE) ON 09 JUNE 2009.
     Route: 065
     Dates: start: 20090414
  2. BEPANTOL [Suspect]
     Indication: PROPHYLAXIS
     Dosage: INDICATION AS PER PROTOCOL,LAST DOSE PRIOR TO SAE: 13 JUN 2009, PERMANENTLY DISCONTINUED.
     Route: 061
     Dates: start: 20090414, end: 20090623
  3. ONDANSETRON [Concomitant]
     Dates: start: 20090613, end: 20090613
  4. METOCLOPRAMIDE [Concomitant]
     Dates: start: 20090614, end: 20090614
  5. HEPARIN [Concomitant]
     Dates: start: 20090614, end: 20090614
  6. DIPYRONE [Concomitant]
     Dates: start: 20090115, end: 20090615

REACTIONS (5)
  - ARTERIAL THROMBOSIS LIMB [None]
  - LEG AMPUTATION [None]
  - SURGICAL FAILURE [None]
  - URINARY TRACT INFECTION [None]
  - VASCULAR OCCLUSION [None]
